FAERS Safety Report 9186240 (Version 1)
Quarter: 2013Q1

REPORT INFORMATION
  Report Type: Spontaneous
  Country: US (occurrence: None)
  Receive Date: 20120628
  Receipt Date: 20120628
  Transmission Date: 20140127
  Serious: Yes (Death, Hospitalization)
  Sender: FDA-Public Use
  Company Number: PHEH2011US05311

PATIENT
  Age: 50 Year
  Sex: Female
  Weight: 65 kg

DRUGS (6)
  1. RECLAST [Suspect]
     Indication: OSTEOPOROSIS
     Dosage: 5MG YEARLY INTRAVENOUSLY
     Dates: start: 20110526
  2. ESTRADOIL (ESTRADIOL) [Concomitant]
  3. XANAX (ALPRAZOLAM) [Concomitant]
  4. CYMBALTA (DULOXETINE HYDROCHLORIDE) [Concomitant]
  5. SYNTHROID (LEVOTHYROXINE SODIUM) [Concomitant]
  6. VYTORIN (EZETIMIBE, SIMVASTATIN) [Concomitant]

REACTIONS (2)
  - Renal failure acute [None]
  - Malaise [None]
